FAERS Safety Report 16587697 (Version 1)
Quarter: 2019Q3

REPORT INFORMATION
  Report Type: Spontaneous
  Country: CA (occurrence: CA)
  Receive Date: 20190717
  Receipt Date: 20190717
  Transmission Date: 20191004
  Serious: Yes (Hospitalization)
  Sender: FDA-Public Use
  Company Number: CA-GLAXOSMITHKLINE-CA2019AMR125829

PATIENT
  Age: 53 Year
  Sex: Male

DRUGS (1)
  1. SALBUTAMOL [Suspect]
     Active Substance: ALBUTEROL
     Indication: ASTHMA
     Dosage: UNK

REACTIONS (5)
  - Respiratory disorder [Unknown]
  - Asthma [Unknown]
  - Wheezing [Unknown]
  - Decreased activity [Unknown]
  - Dyspnoea [Unknown]
